FAERS Safety Report 4275993-6 (Version None)
Quarter: 2004Q1

REPORT INFORMATION
  Report Type: 
  Country: None (occurrence: None)
  Receive Date: 20040121
  Receipt Date: 20030519
  Transmission Date: 20041129
  Serious: No
  Sender: FDA-Public Use
  Company Number: US-GLAXOSMITHKLINE-A0409049A

PATIENT
  Sex: Male

DRUGS (3)
  1. VALTREX [Suspect]
     Dosage: 500MG TWICE PER DAY
     Route: 048
  2. HYDROGEN PEROXIDE SOLUTION [Concomitant]
  3. ZOVIRAX [Concomitant]
     Route: 065

REACTIONS (3)
  - DIARRHOEA [None]
  - HYPERSENSITIVITY [None]
  - RASH [None]
